FAERS Safety Report 23116402 (Version 3)
Quarter: 2023Q4

REPORT INFORMATION
  Report Type: Spontaneous
  Country: NZ (occurrence: NZ)
  Receive Date: 20231027
  Receipt Date: 20231110
  Transmission Date: 20240110
  Serious: Yes (Other)
  Sender: FDA-Public Use
  Company Number: NZ-TEVA-2023-NZ-2940467

PATIENT
  Age: 59 Year
  Sex: Male

DRUGS (2)
  1. SILDENAFIL [Suspect]
     Active Substance: SILDENAFIL
     Indication: Erectile dysfunction
     Dosage: DOSE: 100MILLIGRAM, HALF TABLET DAILY, UP TO TWICE WEEKLY
     Route: 048
  2. SILDENAFIL [Suspect]
     Active Substance: SILDENAFIL
     Dosage: 100 MILLIGRAM DAILY;
     Route: 048
     Dates: start: 2016

REACTIONS (2)
  - Thrombosis [Not Recovered/Not Resolved]
  - Penile haemorrhage [Not Recovered/Not Resolved]

NARRATIVE: CASE EVENT DATE: 20230916
